FAERS Safety Report 5917241-4 (Version None)
Quarter: 2008Q4

REPORT INFORMATION
  Report Type: 
  Country: None (occurrence: None)
  Receive Date: 20081009
  Receipt Date: 20080924
  Transmission Date: 20090506
  Serious: Yes (Hospitalization)
  Sender: FDA-Public Use
  Company Number: 2008S1010494

PATIENT
  Age: 69 Year
  Sex: Male

DRUGS (1)
  1. TEMERIT (NEBIVOLOL) [Suspect]
     Indication: HYPERTENSION
     Dosage: ORAL
     Route: 048
     Dates: start: 20061001

REACTIONS (1)
  - BLINDNESS [None]
